FAERS Safety Report 7326384-2 (Version None)
Quarter: 2011Q1

REPORT INFORMATION
  Report Type: 
  Country: None (occurrence: None)
  Receive Date: 20110218
  Receipt Date: 20110207
  Transmission Date: 20110831
  Serious: Yes (Death, Hospitalization)
  Sender: FDA-Public Use
  Company Number: 2010005620

PATIENT
  Age: 79 Year
  Sex: Male

DRUGS (18)
  1. CELEXA [Concomitant]
  2. METFORMIN (METFORMIN) [Concomitant]
  3. FORMOTEROL (FORMOTEROL) [Concomitant]
  4. ERIBULIN MESYLATE [Suspect]
     Indication: NON-SMALL CELL LUNG CANCER
     Dosage: (3.28 MG, 2 X PER 21 DAY), INTRAVENOUS
     Route: 042
     Dates: start: 20100930, end: 20101207
  5. ASMANEX TWISTHALER [Concomitant]
  6. RIVASTIGMINE HYDROGEN TARTRATE [Concomitant]
  7. DOXYCYCLINE [Concomitant]
  8. BECONASE [Concomitant]
  9. CRESTOR [Concomitant]
  10. PRILOSEC (OMEPRAZOLE) [Concomitant]
  11. CARDURA [Concomitant]
  12. SLOW FE [Concomitant]
  13. ERLOTINIB (TABLET) [Suspect]
     Indication: NON-SMALL CELL LUNG CANCER
     Dosage: (150 MG, 2 X 21 DAYS), ORAL
     Route: 048
     Dates: start: 20101001, end: 20101222
  14. ALLEGRA [Concomitant]
  15. LISINOPRIL [Concomitant]
  16. VITAMIN B12 [Concomitant]
  17. DUONEB [Concomitant]
  18. PLAVIX [Concomitant]

REACTIONS (5)
  - RESPIRATORY FAILURE [None]
  - VOMITING [None]
  - FEBRILE NEUTROPENIA [None]
  - HYPOXIA [None]
  - WHITE BLOOD CELL COUNT DECREASED [None]
